FAERS Safety Report 13132380 (Version 2)
Quarter: 2017Q1

REPORT INFORMATION
  Report Type: Spontaneous
  Country: US (occurrence: US)
  Receive Date: 20170120
  Receipt Date: 20170213
  Transmission Date: 20170428
  Serious: No
  Sender: FDA-Public Use
  Company Number: US-BRISTOL-MYERS SQUIBB COMPANY-BMS-2017-003031

PATIENT
  Sex: Male

DRUGS (2)
  1. ABILIFY [Suspect]
     Active Substance: ARIPIPRAZOLE
     Indication: ANXIETY
     Dosage: 10 MG, QD
     Route: 048
     Dates: start: 2004
  2. ABILIFY [Suspect]
     Active Substance: ARIPIPRAZOLE
     Indication: DEPRESSION
     Dosage: 15 MG, UNK
     Route: 065
     Dates: start: 2016

REACTIONS (6)
  - Thinking abnormal [Not Recovered/Not Resolved]
  - Insomnia [Recovered/Resolved]
  - Off label use [Unknown]
  - Agitation [Recovered/Resolved]
  - Anxiety [Recovered/Resolved]
  - Treatment noncompliance [Unknown]

NARRATIVE: CASE EVENT DATE: 2004
